FAERS Safety Report 8450252-6 (Version None)
Quarter: 2012Q2

REPORT INFORMATION
  Report Type: 
  Country: None (occurrence: None)
  Receive Date: 20120613
  Receipt Date: 20120604
  Transmission Date: 20120825
  Serious: Yes (Other)
  Sender: FDA-Public Use
  Company Number: AUR-APL-2012-02532

PATIENT
  Age: 70 Year
  Sex: Female

DRUGS (6)
  1. RAMIPRIL [Suspect]
     Indication: HYPERTENSION
     Dosage: (5 MG, 1 D), ORAL
     Route: 048
     Dates: start: 20110101, end: 20120509
  2. PROTON PUMP INHIBITOR (NOS) (PROTON PUMP INHIBITORS) [Concomitant]
  3. ATENOLOL [Suspect]
     Indication: HYPERTENSION
     Dosage: (50 MG, 1 D), ORAL
     Route: 048
     Dates: start: 20110101, end: 20120509
  4. PERIDON (DOMPERIDONE) [Concomitant]
  5. RAMIPRIL [Suspect]
     Indication: HYPERTENSION
     Dosage: (10 MG, ONCE), ORAL
     Route: 048
     Dates: start: 20120508, end: 20120508
  6. CARDURA [Suspect]
     Indication: HYPERTENSION
     Dosage: (2 MG, ONCE), ORAL
     Route: 048
     Dates: start: 20110508, end: 20110508

REACTIONS (2)
  - PRESYNCOPE [None]
  - ORTHOSTATIC HYPOTENSION [None]
